FAERS Safety Report 17893308 (Version 2)
Quarter: 2020Q2

REPORT INFORMATION
  Report Type: Spontaneous
  Country: IT (occurrence: IT)
  Receive Date: 20200614
  Receipt Date: 20200624
  Transmission Date: 20200714
  Serious: Yes (Life-Threatening, Hospitalization, Disabling, Other)
  Sender: FDA-Public Use
  Company Number: IT-BAXTER-2020BAX012320

PATIENT
  Age: 57 Year
  Sex: Female
  Weight: 60 kg

DRUGS (16)
  1. DOXIL [Suspect]
     Active Substance: DOXORUBICIN HYDROCHLORIDE
     Indication: HODGKIN^S DISEASE
     Dosage: ON DAY 1 (BEACOPP)
     Route: 065
     Dates: start: 201210, end: 201210
  2. CYCLOPHOSPHAMIDE. [Suspect]
     Active Substance: CYCLOPHOSPHAMIDE
     Indication: HODGKIN^S DISEASE
     Dosage: ON DAY 1 (BEACOPP)
     Route: 065
     Dates: start: 201210, end: 201210
  3. ETOPOSIDE. [Suspect]
     Active Substance: ETOPOSIDE
     Indication: HODGKIN^S DISEASE
     Dosage: ON DAYS 1 AND 3
     Route: 065
     Dates: start: 201210, end: 201210
  4. BLEOMYCIN [Suspect]
     Active Substance: BLEOMYCIN SULFATE
     Indication: HODGKIN^S DISEASE
     Dosage: 10 IU/M^2 ON DAY 8 (BEACOPP)
     Route: 065
     Dates: start: 201210, end: 201210
  5. GEMCITABINE. [Suspect]
     Active Substance: GEMCITABINE
     Indication: HODGKIN^S DISEASE
     Dosage: ON DAYS 1 AND 4 (IGEV)
     Route: 065
     Dates: start: 201109, end: 201109
  6. VINORELBINE [Suspect]
     Active Substance: VINORELBINE TARTRATE
     Indication: HODGKIN^S DISEASE
     Dosage: ON DAY 1 (IGEV)
     Route: 065
     Dates: start: 201109, end: 201109
  7. PROCARBAZINE [Suspect]
     Active Substance: PROCARBAZINE
     Route: 065
     Dates: start: 201006, end: 201012
  8. IFOSFAMIDE. [Suspect]
     Active Substance: IFOSFAMIDE
     Indication: HODGKIN^S DISEASE
     Dosage: ON DAYS 1, 2, 3 AND 4 (IGEV)
     Route: 065
     Dates: start: 201109, end: 201109
  9. VINBLASTINE [Suspect]
     Active Substance: VINBLASTINE
     Indication: HODGKIN^S DISEASE
     Dosage: ON DAYS 1 AND 15 (ABVD)
     Route: 065
     Dates: start: 20100601, end: 20101206
  10. DACARBAZINE. [Suspect]
     Active Substance: DACARBAZINE
     Indication: HODGKIN^S DISEASE
     Dosage: ON DAYS 1 AND 15 (ABVD)
     Route: 065
     Dates: start: 20100601, end: 20101206
  11. DOXIL [Suspect]
     Active Substance: DOXORUBICIN HYDROCHLORIDE
     Dosage: ON DAYS 1 AND 15 (ABVD)
     Route: 065
     Dates: start: 20100601, end: 20101206
  12. BLEOMYCIN [Suspect]
     Active Substance: BLEOMYCIN SULFATE
     Dosage: 10 IU/M^2 ON DAYS 1 AND 15 (ABVD)
     Route: 065
     Dates: start: 20100601, end: 20101206
  13. VINCRISTINE [Suspect]
     Active Substance: VINCRISTINE
     Indication: HODGKIN^S DISEASE
     Dosage: ON DAY 8 (BEACOPP)
     Route: 065
     Dates: start: 201210, end: 201210
  14. PREDNISONE. [Suspect]
     Active Substance: PREDNISONE
     Dosage: ON DAYS 1 TO 4 (IGEV)
     Route: 065
     Dates: start: 201109, end: 201109
  15. PROCARBAZINE [Suspect]
     Active Substance: PROCARBAZINE
     Indication: HODGKIN^S DISEASE
     Dosage: ON DAYS 1 AND 7 (BEACOPP)
     Route: 065
     Dates: start: 201210, end: 201210
  16. PREDNISONE. [Suspect]
     Active Substance: PREDNISONE
     Indication: HODGKIN^S DISEASE
     Dosage: ON DAYS 1 AND 7 (BEACOPP)
     Route: 065
     Dates: start: 201210, end: 201210

REACTIONS (4)
  - Pancytopenia [Unknown]
  - JC virus infection [Unknown]
  - Lymphopenia [Unknown]
  - Progressive multifocal leukoencephalopathy [Not Recovered/Not Resolved]

NARRATIVE: CASE EVENT DATE: 201210
